FAERS Safety Report 13510279 (Version 1)
Quarter: 2017Q2

REPORT INFORMATION
  Report Type: Spontaneous
  Country: CA (occurrence: CA)
  Receive Date: 20170503
  Receipt Date: 20170503
  Transmission Date: 20170830
  Serious: Yes (Hospitalization, Other)
  Sender: FDA-Public Use
  Company Number: CA-UCBSA-2017016857

PATIENT
  Age: 58 Year
  Sex: Female

DRUGS (11)
  1. VALPROIC ACID. [Concomitant]
     Active Substance: VALPROIC ACID
     Indication: STATUS EPILEPTICUS
     Dosage: UNKNOWN DOSE
  2. LEVETIRACETAM. [Suspect]
     Active Substance: LEVETIRACETAM
     Indication: STATUS EPILEPTICUS
     Dosage: UNKNOWN DOSE
  3. PIPERACILLIN/TAZOBACTAM [Concomitant]
     Active Substance: PIPERACILLIN SODIUM\TAZOBACTAM SODIUM
     Indication: APPENDICITIS
     Dosage: UNKNOWN DOSE
  4. PROPOFOL. [Concomitant]
     Active Substance: PROPOFOL
     Indication: STATUS EPILEPTICUS
     Dosage: UNKNOWN DOSE
  5. METHYLPREDNISOLONE. [Concomitant]
     Active Substance: METHYLPREDNISOLONE
     Indication: STATUS EPILEPTICUS
     Dosage: 4 G
     Route: 042
  6. ISOFLURANE. [Concomitant]
     Active Substance: ISOFLURANE
     Indication: STATUS EPILEPTICUS
     Dosage: UNKNOWN DOSE
  7. LEVETIRACETAM. [Suspect]
     Active Substance: LEVETIRACETAM
     Indication: OFF LABEL USE
  8. MIDAZOLAM [Concomitant]
     Active Substance: MIDAZOLAM HYDROCHLORIDE
     Indication: STATUS EPILEPTICUS
     Dosage: UNKNOWN DOSE
  9. PHENOBARBITAL. [Concomitant]
     Active Substance: PHENOBARBITAL
     Indication: STATUS EPILEPTICUS
     Dosage: 150 MG NG () Q12 H
  10. KETAMINE [Concomitant]
     Active Substance: KETAMINE
     Indication: STATUS EPILEPTICUS
     Dosage: UNKNOWN DOSE
  11. PHENYTOIN. [Concomitant]
     Active Substance: PHENYTOIN
     Indication: STATUS EPILEPTICUS
     Dosage: UNKNOWN DOSE

REACTIONS (6)
  - Ultrasound ovary abnormal [Unknown]
  - Intestinal ischaemia [Unknown]
  - Off label use [Unknown]
  - Cardiomegaly [Unknown]
  - Carbohydrate antigen 125 increased [Unknown]
  - Systemic inflammatory response syndrome [Unknown]
